FAERS Safety Report 20906415 (Version 1)
Quarter: 2022Q2

REPORT INFORMATION
  Report Type: Spontaneous
  Country: US (occurrence: None)
  Receive Date: 20220602
  Receipt Date: 20220602
  Transmission Date: 20220721
  Serious: No
  Sender: FDA-Public Use
  Company Number: None

PATIENT
  Age: 84 Year
  Sex: Male
  Weight: 92.99 kg

DRUGS (10)
  1. PAXLOVID [Suspect]
     Active Substance: NIRMATRELVIR\RITONAVIR
     Indication: COVID-19
     Dosage: OTHER FREQUENCY : 3 PILLS, 2X P/D;?
     Route: 048
     Dates: start: 20220515, end: 20220520
  2. AMLODIPINE BESYLATE [Concomitant]
     Active Substance: AMLODIPINE BESYLATE
  3. PLAVIX [Concomitant]
     Active Substance: CLOPIDOGREL BISULFATE
  4. Furosomide [Concomitant]
  5. Metorprolol [Concomitant]
  6. RAMIPRIL [Concomitant]
     Active Substance: RAMIPRIL
  7. DILTIAZEM [Concomitant]
     Active Substance: DILTIAZEM
  8. ELIQUIS [Concomitant]
     Active Substance: APIXABAN
  9. ROSUVASTATIN [Concomitant]
     Active Substance: ROSUVASTATIN
  10. EZETIMIBE [Concomitant]
     Active Substance: EZETIMIBE

REACTIONS (2)
  - COVID-19 [None]
  - SARS-CoV-2 test positive [None]

NARRATIVE: CASE EVENT DATE: 20220510
